FAERS Safety Report 20702371 (Version 1)
Quarter: 2022Q2

REPORT INFORMATION
  Report Type: Spontaneous
  Country: US (occurrence: US)
  Receive Date: 20220412
  Receipt Date: 20220412
  Transmission Date: 20220721
  Serious: No
  Sender: FDA-Public Use
  Company Number: US-PFIZER INC-202101219011

PATIENT
  Age: 70 Year
  Sex: Male

DRUGS (1)
  1. INLYTA [Suspect]
     Active Substance: AXITINIB
     Dosage: UNK
     Dates: start: 20210409, end: 20210910

REACTIONS (3)
  - Diarrhoea [Unknown]
  - Nausea [Unknown]
  - Eructation [Unknown]

NARRATIVE: CASE EVENT DATE: 20210101
